FAERS Safety Report 10307726 (Version 1)
Quarter: 2014Q3

REPORT INFORMATION
  Report Type: Spontaneous
  Country: US (occurrence: US)
  Receive Date: 20140716
  Receipt Date: 20140716
  Transmission Date: 20150326
  Serious: No
  Sender: FDA-Public Use
  Company Number: US-GLAXOSMITHKLINE-A1076951A

PATIENT
  Age: 79 Year
  Sex: Female

DRUGS (5)
  1. DALIRESP [Concomitant]
     Active Substance: ROFLUMILAST
  2. BUDESONIDE. [Concomitant]
     Active Substance: BUDESONIDE
  3. ANORO ELLIPTA [Suspect]
     Active Substance: UMECLIDINIUM BROMIDE\VILANTEROL TRIFENATATE
     Indication: CHRONIC OBSTRUCTIVE PULMONARY DISEASE
     Dosage: 1PUFF PER DAY
     Route: 055
     Dates: start: 20140529
  4. FUROSEMIDE. [Concomitant]
     Active Substance: FUROSEMIDE
  5. ALDACTONE [Concomitant]
     Active Substance: SPIRONOLACTONE

REACTIONS (4)
  - Malaise [Recovering/Resolving]
  - Rhinorrhoea [Recovering/Resolving]
  - Tremor [Recovering/Resolving]
  - Increased upper airway secretion [Recovering/Resolving]

NARRATIVE: CASE EVENT DATE: 20140530
